FAERS Safety Report 8363296-X (Version None)
Quarter: 2012Q2

REPORT INFORMATION
  Report Type: 
  Country: None (occurrence: None)
  Receive Date: 20120516
  Receipt Date: 20120502
  Transmission Date: 20120825
  Serious: Yes (Other)
  Sender: FDA-Public Use
  Company Number: DE-JNJFOC-20120504213

PATIENT
  Sex: Female
  Weight: 40 kg

DRUGS (2)
  1. MORPHINE SULFATE [Interacting]
     Indication: BREAKTHROUGH PAIN
     Route: 065
  2. DURAGESIC-100 [Suspect]
     Indication: PRODUCT USED FOR UNKNOWN INDICATION
     Route: 062

REACTIONS (2)
  - DRUG INTERACTION [None]
  - ADVERSE DRUG REACTION [None]
